FAERS Safety Report 10225867 (Version 2)
Quarter: 2014Q2

REPORT INFORMATION
  Report Type: Spontaneous
  Country: US (occurrence: US)
  Receive Date: 20140609
  Receipt Date: 20140609
  Transmission Date: 20141212
  Serious: No
  Sender: FDA-Public Use
  Company Number: US-ASTELLAS-2013US005436

PATIENT
  Age: 36 Year
  Sex: Female
  Weight: 52 kg

DRUGS (2)
  1. PROGRAF [Suspect]
     Indication: RENAL TRANSPLANT
     Route: 048
     Dates: start: 20090601
  2. PROGRAF [Suspect]
     Indication: PANCREAS TRANSPLANT

REACTIONS (2)
  - Off label use [Unknown]
  - Exposure during pregnancy [Unknown]
